FAERS Safety Report 7868224-9 (Version None)
Quarter: 2011Q4

REPORT INFORMATION
  Report Type: 
  Country: None (occurrence: None)
  Receive Date: 20111028
  Receipt Date: 20111025
  Transmission Date: 20120403
  Serious: Yes (Other)
  Sender: FDA-Public Use
  Company Number: AU-MERCK-1105USA04084

PATIENT
  Age: 67 Year
  Sex: Female

DRUGS (1)
  1. FOSAMAX [Suspect]
     Indication: OSTEOPOROSIS
     Route: 048
     Dates: start: 20010101, end: 20110101

REACTIONS (5)
  - ARTHROPATHY [None]
  - MOBILITY DECREASED [None]
  - FEMUR FRACTURE [None]
  - TIBIA FRACTURE [None]
  - TOOTH DISORDER [None]
